FAERS Safety Report 5339268-6 (Version None)
Quarter: 2007Q2

REPORT INFORMATION
  Report Type: 
  Country: None (occurrence: None)
  Receive Date: 20070530
  Receipt Date: 20070518
  Transmission Date: 20071010
  Serious: Yes (Hospitalization)
  Sender: FDA-Public Use
  Company Number: JP-AMGEN-US224337

PATIENT
  Sex: Female
  Weight: 62 kg

DRUGS (14)
  1. ENBREL [Suspect]
     Indication: RHEUMATOID ARTHRITIS
     Route: 058
     Dates: start: 20061020, end: 20061110
  2. ENBREL [Suspect]
     Route: 058
     Dates: start: 20061121, end: 20070404
  3. ENBREL [Suspect]
     Route: 058
  4. PREDNISOLONE [Suspect]
     Indication: RHEUMATOID ARTHRITIS
     Route: 048
     Dates: start: 20050801
  5. AMARYL [Concomitant]
     Route: 048
     Dates: start: 20050801
  6. BASEN [Concomitant]
     Route: 048
     Dates: start: 20050801
  7. ADOFEED [Concomitant]
     Dosage: UNKNOWN
     Route: 061
     Dates: start: 20050801
  8. ASPIRIN [Concomitant]
     Route: 048
     Dates: start: 20050801
  9. MEVALOTIN [Concomitant]
     Route: 048
     Dates: start: 20050801
  10. MICARDIS [Concomitant]
     Route: 048
     Dates: start: 20050801
  11. GASTER [Concomitant]
     Route: 048
     Dates: start: 20050801
  12. KETOPROFEN [Concomitant]
     Dosage: TAPE
     Route: 061
     Dates: start: 20050801
  13. ACTOS [Concomitant]
     Route: 048
     Dates: start: 20050801
  14. PARLODEL [Concomitant]
     Route: 048
     Dates: start: 20050801

REACTIONS (3)
  - ARTHRALGIA [None]
  - MALAISE [None]
  - PYREXIA [None]
